FAERS Safety Report 8230357-5 (Version None)
Quarter: 2012Q1

REPORT INFORMATION
  Report Type: 
  Country: None (occurrence: None)
  Receive Date: 20120323
  Receipt Date: 20120314
  Transmission Date: 20120608
  Serious: Yes (Other)
  Sender: FDA-Public Use
  Company Number: HR-JNJFOC-20120308298

PATIENT
  Age: 43 Year
  Sex: Male

DRUGS (1)
  1. RISPERIDONE [Suspect]
     Indication: SCHIZOPHRENIA
     Route: 030
     Dates: start: 20100101

REACTIONS (4)
  - THINKING ABNORMAL [None]
  - COGNITIVE DISORDER [None]
  - SOCIAL AVOIDANT BEHAVIOUR [None]
  - HALLUCINATION, AUDITORY [None]
